FAERS Safety Report 18729481 (Version 1)
Quarter: 2021Q1

REPORT INFORMATION
  Report Type: Spontaneous
  Country: US (occurrence: US)
  Receive Date: 20210111
  Receipt Date: 20210111
  Transmission Date: 20210419
  Serious: Yes (Other)
  Sender: FDA-Public Use
  Company Number: None

PATIENT
  Age: 38 Year
  Sex: Female
  Weight: 87 kg

DRUGS (1)
  1. NEXPLANON [Suspect]
     Active Substance: ETONOGESTREL
     Dates: start: 20190327, end: 20210106

REACTIONS (5)
  - Anxiety [None]
  - Palpitations [None]
  - Vulvovaginal mycotic infection [None]
  - Peripheral swelling [None]
  - Vaginal infection [None]

NARRATIVE: CASE EVENT DATE: 20210106
